FAERS Safety Report 5337278-6 (Version None)
Quarter: 2007Q2

REPORT INFORMATION
  Report Type: 
  Country: None (occurrence: None)
  Receive Date: 20070529
  Receipt Date: 20070524
  Transmission Date: 20071010
  Serious: Yes (Hospitalization)
  Sender: FDA-Public Use
  Company Number: B0472256A

PATIENT
  Age: 17 Year
  Sex: Female
  Weight: 75 kg

DRUGS (2)
  1. CLAMOXYL [Suspect]
     Indication: PAIN
     Dosage: 2G PER DAY
     Route: 048
     Dates: start: 20070412, end: 20070415
  2. NIFLURIL [Suspect]
     Indication: PAIN
     Dosage: 1UNIT THREE TIMES PER DAY
     Route: 048
     Dates: start: 20070412, end: 20070415

REACTIONS (7)
  - CHAPPED LIPS [None]
  - GINGIVITIS [None]
  - INFLAMMATION [None]
  - LIP OEDEMA [None]
  - LYMPHADENOPATHY [None]
  - MOUTH ULCERATION [None]
  - PHARYNGEAL ERYTHEMA [None]
